FAERS Safety Report 25456304 (Version 2)
Quarter: 2025Q3

REPORT INFORMATION
  Report Type: Spontaneous
  Country: GB (occurrence: GB)
  Receive Date: 20250619
  Receipt Date: 20250712
  Transmission Date: 20251020
  Serious: Yes (Other)
  Sender: ORGANON
  Company Number: None

PATIENT
  Age: 81 Year
  Sex: Male
  Weight: 94 kg

DRUGS (2)
  1. EZETIMIBE\SIMVASTATIN [Suspect]
     Active Substance: EZETIMIBE\SIMVASTATIN
     Indication: Adverse drug reaction
     Dates: start: 20250401, end: 20250519
  2. HYDROCORTISONE [Concomitant]
     Active Substance: HYDROCORTISONE
     Indication: Adrenal disorder

REACTIONS (3)
  - Adrenocortical insufficiency acute [Recovered/Resolved with Sequelae]
  - Fatigue [Unknown]
  - Epinephrine decreased [Unknown]

NARRATIVE: CASE EVENT DATE: 20250417
